FAERS Safety Report 15382055 (Version 1)
Quarter: 2018Q3

REPORT INFORMATION
  Report Type: Spontaneous
  Country: US (occurrence: US)
  Receive Date: 20180913
  Receipt Date: 20180913
  Transmission Date: 20181010
  Serious: Yes (Hospitalization)
  Sender: FDA-Public Use
  Company Number: US-ASTELLAS-2018US008444

PATIENT
  Sex: Male

DRUGS (1)
  1. XTANDI [Suspect]
     Active Substance: ENZALUTAMIDE
     Indication: PROSTATE CANCER
     Route: 048
     Dates: start: 20180122

REACTIONS (10)
  - Pain in extremity [Unknown]
  - Dizziness [Recovering/Resolving]
  - Foot fracture [Recovering/Resolving]
  - Arthralgia [Recovering/Resolving]
  - Musculoskeletal pain [Unknown]
  - Hot flush [Not Recovered/Not Resolved]
  - Neck pain [Unknown]
  - Nausea [Not Recovered/Not Resolved]
  - Fall [Recovering/Resolving]
  - Myalgia [Recovering/Resolving]
